FAERS Safety Report 8581440-6 (Version None)
Quarter: 2012Q3

REPORT INFORMATION
  Report Type: 
  Country: None (occurrence: None)
  Receive Date: 20120809
  Receipt Date: 20120730
  Transmission Date: 20120928
  Serious: Yes (Death)
  Sender: FDA-Public Use
  Company Number: US-BRISTOL-MYERS SQUIBB COMPANY-16818023

PATIENT
  Age: 32 Year
  Sex: Male

DRUGS (6)
  1. RALTEGRAVIR [Suspect]
     Indication: ACQUIRED IMMUNODEFICIENCY SYNDROME
     Dates: start: 20100501
  2. TENOFOVIR DISOPROXIL FUMARATE [Suspect]
     Indication: ACQUIRED IMMUNODEFICIENCY SYNDROME
     Dates: start: 20100501
  3. ATAZANAVIR [Suspect]
     Indication: ACQUIRED IMMUNODEFICIENCY SYNDROME
     Dates: start: 20100501
  4. RALTEGRAVIR [Suspect]
     Indication: HIV INFECTION
     Dates: start: 20100501
  5. TENOFOVIR DISOPROXIL FUMARATE [Suspect]
     Indication: HIV INFECTION
     Dates: start: 20100501
  6. ATAZANAVIR [Suspect]
     Indication: HIV INFECTION
     Dates: start: 20100501

REACTIONS (2)
  - KAPOSI'S SARCOMA [None]
  - IMMUNE RECONSTITUTION SYNDROME [None]
